FAERS Safety Report 9421532 (Version 3)
Quarter: 2014Q1

REPORT INFORMATION
  Report Type: Spontaneous
  Country: US (occurrence: US)
  Receive Date: 20130726
  Receipt Date: 20140120
  Transmission Date: 20141002
  Serious: Yes (Hospitalization)
  Sender: FDA-Public Use
  Company Number: US-BIOGENIDEC-2013BI067241

PATIENT
  Age: 48 Year
  Sex: Female

DRUGS (2)
  1. TECFIDERA [Suspect]
     Indication: MULTIPLE SCLEROSIS
     Route: 048
  2. TECFIDERA [Suspect]
     Indication: MULTIPLE SCLEROSIS
     Route: 048
     Dates: start: 20130606

REACTIONS (5)
  - Multiple sclerosis relapse [Not Recovered/Not Resolved]
  - Somnolence [Unknown]
  - Urinary tract infection [Not Recovered/Not Resolved]
  - Encephalitis [Not Recovered/Not Resolved]
  - Cystitis [Unknown]
